FAERS Safety Report 23077952 (Version 1)
Quarter: 2023Q4

REPORT INFORMATION
  Report Type: Spontaneous
  Country: US (occurrence: US)
  Receive Date: 20231018
  Receipt Date: 20231018
  Transmission Date: 20240109
  Serious: Yes (Hospitalization, Other)
  Sender: FDA-Public Use
  Company Number: US-ARBOR PHARMACEUTICALS, LLC-US-2023ARB004806

PATIENT
  Age: 21 Year
  Sex: Male

DRUGS (1)
  1. AMPHETAMINE SULFATE [Suspect]
     Active Substance: AMPHETAMINE SULFATE
     Indication: Product used for unknown indication
     Dosage: UNK

REACTIONS (6)
  - Encephalopathy [Recovering/Resolving]
  - Delirium [Recovering/Resolving]
  - Mental status changes [Recovering/Resolving]
  - Pyrexia [Recovering/Resolving]
  - Muscle rigidity [Recovering/Resolving]
  - Autonomic neuropathy [Recovering/Resolving]
